FAERS Safety Report 6690828-X (Version None)
Quarter: 2010Q2

REPORT INFORMATION
  Report Type: 
  Country: None (occurrence: None)
  Receive Date: 20100421
  Receipt Date: 20100413
  Transmission Date: 20101027
  Serious: Yes (Disabling, Other)
  Sender: FDA-Public Use
  Company Number: PHHY2010IT24038

PATIENT
  Sex: Female

DRUGS (5)
  1. ZOMETA [Suspect]
     Indication: METASTASES TO BONE
     Dosage: 4 MG, QMO
     Route: 042
     Dates: start: 20080220, end: 20080709
  2. ZOMETA [Suspect]
     Dosage: 4 MG, QMO
     Route: 042
     Dates: start: 20080919, end: 20090313
  3. HERCEPTIN [Concomitant]
     Dosage: 150 MG, UNK
     Route: 042
     Dates: start: 20081120, end: 20090311
  4. NAVELBINE [Concomitant]
     Dosage: 10 MG/ML, UNK
     Route: 042
     Dates: start: 20081120, end: 20090311
  5. AROMASIN [Concomitant]
     Dosage: 25 MG, UNK
     Route: 048
     Dates: start: 20090401, end: 20100127

REACTIONS (4)
  - CONDITION AGGRAVATED [None]
  - OSTEOLYSIS [None]
  - OSTEONECROSIS [None]
  - PRIMARY SEQUESTRUM [None]
